FAERS Safety Report 11520986 (Version 1)
Quarter: 2015Q3

REPORT INFORMATION
  Report Type: Spontaneous
  Country: GB (occurrence: GB)
  Receive Date: 20150918
  Receipt Date: 20150918
  Transmission Date: 20151125
  Serious: Yes (Life-Threatening, Hospitalization)
  Sender: FDA-Public Use
  Company Number: GB-WATSON-2015-19705

PATIENT
  Age: 68 Year
  Sex: Male

DRUGS (9)
  1. RAMIPRIL (UNKNOWN) [Suspect]
     Active Substance: RAMIPRIL
     Indication: ESSENTIAL HYPERTENSION
     Dosage: 7.5 MG, DAILY
     Route: 048
     Dates: start: 20140910, end: 20150823
  2. ETORICOXIB [Concomitant]
     Active Substance: ETORICOXIB
     Indication: SERONEGATIVE ARTHRITIS
     Dosage: UNK
     Route: 065
     Dates: start: 20130910
  3. INDAPAMIDE. [Concomitant]
     Active Substance: INDAPAMIDE
     Indication: ESSENTIAL HYPERTENSION
     Dosage: UNK
     Route: 065
     Dates: start: 20141219
  4. SIMVASTATIN. [Concomitant]
     Active Substance: SIMVASTATIN
     Indication: INTERMITTENT CLAUDICATION
     Dosage: UNK
     Route: 065
     Dates: start: 20150326
  5. OMEPRAZOLE. [Concomitant]
     Active Substance: OMEPRAZOLE
     Indication: PRODUCT USED FOR UNKNOWN INDICATION
     Dosage: UNK
     Route: 065
     Dates: start: 20130813
  6. ASPIRIN. [Concomitant]
     Active Substance: ASPIRIN
     Indication: INTERMITTENT CLAUDICATION
     Dosage: UNK
     Route: 065
     Dates: start: 20150130
  7. METFORMIN [Concomitant]
     Active Substance: METFORMIN HYDROCHLORIDE
     Indication: TYPE 2 DIABETES MELLITUS
     Dosage: UNK
     Route: 065
     Dates: start: 20130813
  8. LEFLUNOMIDE. [Suspect]
     Active Substance: LEFLUNOMIDE
     Indication: RHEUMATOID ARTHRITIS
     Dosage: 10 MG, DAILY
     Route: 048
     Dates: start: 20150624
  9. AMLODIPINE [Concomitant]
     Active Substance: AMLODIPINE BESYLATE
     Indication: ESSENTIAL HYPERTENSION
     Dosage: UNK
     Route: 065
     Dates: start: 20140528

REACTIONS (4)
  - Swollen tongue [Recovered/Resolved]
  - Local swelling [Recovered/Resolved]
  - Pharyngeal oedema [Recovered/Resolved]
  - Angioedema [Recovered/Resolved]

NARRATIVE: CASE EVENT DATE: 20150822
